FAERS Safety Report 8837599 (Version 2)
Quarter: 2013Q1

REPORT INFORMATION
  Report Type: Report from Study
  Country: US (occurrence: US)
  Receive Date: 20121012
  Receipt Date: 20130108
  Transmission Date: 20140127
  Serious: Yes (Hospitalization)
  Sender: FDA-Public Use
  Company Number: US-ABBOTT-12P-163-0990736-00

PATIENT
  Sex: Female
  Weight: 101.36 kg

DRUGS (11)
  1. HUMIRA [Suspect]
     Indication: RHEUMATOID ARTHRITIS
     Dates: start: 2008, end: 2010
  2. HUMIRA [Suspect]
     Dates: start: 20121019
  3. ADVAIR [Concomitant]
     Indication: CHRONIC OBSTRUCTIVE PULMONARY DISEASE
  4. DILANTIN [Concomitant]
     Indication: CONVULSION
  5. PROVENTIL [Concomitant]
     Indication: CHRONIC OBSTRUCTIVE PULMONARY DISEASE
     Route: 055
  6. NEXIUM [Concomitant]
     Indication: GASTROOESOPHAGEAL REFLUX DISEASE
     Dosage: 40 MG DAILY
  7. LISINOPRIL [Concomitant]
     Indication: HYPERTENSION
     Dosage: 25 MG DAILY
  8. HYDROCODONE [Concomitant]
     Indication: ARTHRALGIA
     Dosage: 10/325 MG
  9. FLONASE [Concomitant]
     Indication: PRODUCT USED FOR UNKNOWN INDICATION
     Dosage: 1 PUFF PER NOSTRIL DAILY
     Route: 045
  10. AMITRIPTYLINE [Concomitant]
     Indication: INSOMNIA
     Dosage: 25 MG DAILY
  11. AMITRIPTYLINE [Concomitant]
     Dosage: 75 MG DAILY

REACTIONS (9)
  - Chronic obstructive pulmonary disease [Unknown]
  - Herpes zoster [Recovered/Resolved with Sequelae]
  - Back pain [Unknown]
  - Rheumatoid arthritis [Recovering/Resolving]
  - Joint swelling [Not Recovered/Not Resolved]
  - Pain in extremity [Not Recovered/Not Resolved]
  - Gait disturbance [Not Recovered/Not Resolved]
  - Anxiety [Not Recovered/Not Resolved]
  - Dyspnoea [Not Recovered/Not Resolved]
